FAERS Safety Report 11917238 (Version 1)
Quarter: 2016Q1

REPORT INFORMATION
  Report Type: Spontaneous
  Country: BG (occurrence: BG)
  Receive Date: 20160114
  Receipt Date: 20160114
  Transmission Date: 20160526
  Serious: Yes (Other)
  Sender: FDA-Public Use
  Company Number: BG-HQ SPECIALTY-BG-2015INT000737

PATIENT
  Age: 58 Year
  Sex: Male

DRUGS (1)
  1. PACLITAXEL. [Suspect]
     Active Substance: PACLITAXEL
     Indication: CORONARY ARTERY RESTENOSIS
     Dosage: UNK
     Dates: start: 2011

REACTIONS (1)
  - Coronary artery aneurysm [Unknown]
